FAERS Safety Report 6456796-0 (Version None)
Quarter: 2009Q4

REPORT INFORMATION
  Report Type: 
  Country: None (occurrence: None)
  Receive Date: 20091125
  Receipt Date: 20091120
  Transmission Date: 20100525
  Serious: Yes (Other)
  Sender: FDA-Public Use
  Company Number: US-ALLERGAN-0916230US

PATIENT
  Age: 57 Year
  Sex: Female

DRUGS (1)
  1. BOTOX COSMETIC [Suspect]
     Indication: SKIN WRINKLING
     Dosage: UNK
     Dates: start: 20091117, end: 20091117

REACTIONS (4)
  - ARRHYTHMIA [None]
  - CHEST DISCOMFORT [None]
  - CHEST PAIN [None]
  - HEART RATE IRREGULAR [None]
